FAERS Safety Report 6856018-2 (Version None)
Quarter: 2010Q3

REPORT INFORMATION
  Report Type: 
  Country: None (occurrence: None)
  Receive Date: 20100719
  Receipt Date: 20100709
  Transmission Date: 20110219
  Serious: Yes (Hospitalization)
  Sender: FDA-Public Use
  Company Number: IT-BRISTOL-MYERS SQUIBB COMPANY-15192727

PATIENT
  Age: 76 Year
  Sex: Male

DRUGS (2)
  1. CARBIDOPA + LEVODOPA [Suspect]
     Indication: PARKINSON'S DISEASE
     Dosage: 1 DF = 25/250 MG
     Route: 048
  2. CARDURA [Suspect]
     Indication: HYPERTENSION
     Dosage: TAB
     Route: 048

REACTIONS (4)
  - DYSPNOEA [None]
  - HYPERKALAEMIA [None]
  - LUNG INFILTRATION [None]
  - RESPIRATORY DISORDER [None]
